FAERS Safety Report 12348779 (Version 6)
Quarter: 2016Q3

REPORT INFORMATION
  Report Type: Spontaneous
  Country: US (occurrence: US)
  Receive Date: 20160509
  Receipt Date: 20160816
  Transmission Date: 20161109
  Serious: No
  Sender: FDA-Public Use
  Company Number: US-PFIZER INC-2016049585

PATIENT
  Age: 74 Year
  Sex: Female

DRUGS (3)
  1. CELEBREX [Suspect]
     Active Substance: CELECOXIB
     Dosage: 100 MG, AS NEEDED(TWICE A DAY)
     Route: 048
  2. CELEBREX [Suspect]
     Active Substance: CELECOXIB
     Dosage: UNK UNK, 1X/DAY
  3. CELEBREX [Suspect]
     Active Substance: CELECOXIB
     Indication: RHEUMATOID ARTHRITIS
     Dosage: 100 MG, (TAKE 1 CAPSULE TWICE A DAY, AS NEEDED)
     Route: 048

REACTIONS (6)
  - Peripheral swelling [Unknown]
  - Blood potassium decreased [Unknown]
  - Intentional product misuse [Unknown]
  - Tooth extraction [Unknown]
  - Drug ineffective [Unknown]
  - Arthritis [Unknown]
